FAERS Safety Report 9302751 (Version 1)
Quarter: 2013Q2

REPORT INFORMATION
  Report Type: Spontaneous
  Country: FR (occurrence: None)
  Receive Date: 20130516
  Receipt Date: 20130516
  Transmission Date: 20140414
  Serious: Yes (Hospitalization)
  Sender: FDA-Public Use
  Company Number: 2013000109

PATIENT
  Age: 68 Year
  Sex: Female

DRUGS (8)
  1. ACEON (PERINDOPRIL ERBUMINE) TABLET [Suspect]
     Indication: PRODUCT USED FOR UNKNOWN INDICATION
     Route: 048
     Dates: start: 20121127, end: 20121216
  2. VALIUM [Suspect]
     Indication: PRODUCT USED FOR UNKNOWN INDICATION
     Dosage: 5 MG TWICE DAILY.
     Route: 048
  3. TERCIAN [Suspect]
     Indication: PRODUCT USED FOR UNKNOWN INDICATION
     Dosage: 25 DROPS DAILY.
     Route: 048
  4. LYRICA [Suspect]
     Indication: PRODUCT USED FOR UNKNOWN INDICATION
     Route: 048
  5. DIFFU K (POTASSIUM CHLORIDE) [Concomitant]
  6. DAFALGAN (PARACETAMOL) [Concomitant]
  7. METEOSPASMYL (ALVERINE CITRATE, SIMETICONE) [Concomitant]
  8. NOCATMID (LORMETAZEPAM) [Concomitant]

REACTIONS (4)
  - Fall [None]
  - Joint injury [None]
  - Hypotension [None]
  - Muscular weakness [None]
